FAERS Safety Report 7789252-8 (Version None)
Quarter: 2011Q3

REPORT INFORMATION
  Report Type: 
  Country: None (occurrence: None)
  Receive Date: 20110930
  Receipt Date: 20110411
  Transmission Date: 20111222
  Serious: Yes (Hospitalization, Other)
  Sender: FDA-Public Use
  Company Number: US-BAYER-201037608NA

PATIENT
  Age: 21 Year
  Sex: Female
  Weight: 95.238 kg

DRUGS (9)
  1. ALTACE [Concomitant]
  2. YASMIN [Suspect]
     Indication: ACNE
  3. DIGOXIN [Concomitant]
  4. POTASSIUM CHLORIDE [Concomitant]
  5. MACROBID [Concomitant]
     Dosage: 100 MG, UNK
     Dates: start: 20041016
  6. MULTI-VITAMIN [Concomitant]
     Dosage: UNK
     Dates: start: 20041020
  7. YASMIN [Suspect]
     Indication: PREMENSTRUAL SYNDROME
  8. K-CON [Concomitant]
     Dosage: 20 MEQ, QD
  9. DARVOCET [Concomitant]
     Dosage: UNK
     Dates: start: 20041016

REACTIONS (3)
  - GALLBLADDER DISORDER [None]
  - CHOLECYSTITIS ACUTE [None]
  - INJURY [None]
